FAERS Safety Report 25572696 (Version 3)
Quarter: 2025Q3

REPORT INFORMATION
  Report Type: Report from Study
  Country: BR (occurrence: BR)
  Receive Date: 20250717
  Receipt Date: 20250924
  Transmission Date: 20251020
  Serious: Yes (Other)
  Sender: NOVARTIS
  Company Number: BR-002147023-NVSC2025BR092589

PATIENT
  Age: 32 Year
  Sex: Female
  Weight: 70 kg

DRUGS (2)
  1. COSENTYX [Suspect]
     Active Substance: SECUKINUMAB
     Indication: Product used for unknown indication
     Dosage: UNK UNK, QMO
     Route: 065
     Dates: start: 20241216
  2. Perlutan [Concomitant]
     Indication: Product used for unknown indication
     Route: 065

REACTIONS (11)
  - Candida infection [Not Recovered/Not Resolved]
  - Eye irritation [Recovered/Resolved]
  - Injection site pain [Recovered/Resolved]
  - Discomfort [Unknown]
  - Pain [Recovered/Resolved]
  - Rash macular [Unknown]
  - Acne [Unknown]
  - Psoriasis [Unknown]
  - Disease recurrence [Unknown]
  - Vulvovaginal candidiasis [Not Recovered/Not Resolved]
  - Skin odour abnormal [Not Recovered/Not Resolved]

NARRATIVE: CASE EVENT DATE: 20250101
